FAERS Safety Report 4656520-8 (Version None)
Quarter: 2005Q2

REPORT INFORMATION
  Report Type: 
  Country: None (occurrence: None)
  Receive Date: 20050505
  Receipt Date: 20050422
  Transmission Date: 20051028
  Serious: Yes (Life-Threatening, Hospitalization)
  Sender: FDA-Public Use
  Company Number: 2004242670SE

PATIENT
  Sex: Female

DRUGS (1)
  1. DEPO-PROVERA [Suspect]
     Indication: CONTRACEPTION
     Dosage: INJECTION, INTRAMUSCULAR
     Route: 030
     Dates: start: 20040501, end: 20040501

REACTIONS (4)
  - ADRENAL DISORDER [None]
  - MALAISE [None]
  - PROCEDURAL COMPLICATION [None]
  - SEPSIS [None]
